FAERS Safety Report 18019412 (Version 1)
Quarter: 2020Q3

REPORT INFORMATION
  Report Type: Spontaneous
  Country: US (occurrence: US)
  Receive Date: 20200713
  Receipt Date: 20200713
  Transmission Date: 20201103
  Serious: No
  Sender: FDA-Public Use
  Company Number: None

PATIENT
  Age: 35 Year
  Sex: Female
  Weight: 71.67 kg

DRUGS (4)
  1. DULOXETINE HCL 20MG CPEP [Suspect]
     Active Substance: DULOXETINE HYDROCHLORIDE
     Indication: PERINATAL DEPRESSION
     Dosage: ?          QUANTITY:2 DF DOSAGE FORM;?
     Route: 048
     Dates: start: 20200609, end: 20200613
  2. DULOXETIME [Concomitant]
  3. OMEPRAZOLE. [Concomitant]
     Active Substance: OMEPRAZOLE
  4. MULTIVITAMIN [Concomitant]
     Active Substance: VITAMINS

REACTIONS (9)
  - Somnolence [None]
  - Nervousness [None]
  - Product measured potency issue [None]
  - Vision blurred [None]
  - Product quality issue [None]
  - Dizziness [None]
  - Paraesthesia [None]
  - Disturbance in attention [None]
  - Product contamination [None]

NARRATIVE: CASE EVENT DATE: 20200610
